FAERS Safety Report 5772424-1 (Version None)
Quarter: 2008Q2

REPORT INFORMATION
  Report Type: 
  Country: None (occurrence: None)
  Receive Date: 20080613
  Receipt Date: 20080604
  Transmission Date: 20081010
  Serious: Yes (Hospitalization)
  Sender: FDA-Public Use
  Company Number: JP-ELI_LILLY_AND_COMPANY-JP200610003993

PATIENT
  Age: 19 Year
  Sex: Female
  Weight: 52 kg

DRUGS (5)
  1. HUMALOG [Suspect]
     Indication: TYPE 2 DIABETES MELLITUS
     Dosage: 30 U, EACH MORNING
     Route: 058
  2. HUMALOG [Suspect]
     Dosage: 30 U, EACH EVENING
     Route: 058
  3. HUMALOG [Suspect]
     Dosage: 30 U, DAILY (1/D)
     Route: 058
  4. HUMALOG [Suspect]
     Dosage: 300 U, DAILY (1/D)
     Route: 058
     Dates: start: 20050207, end: 20050207
  5. LANTUS [Concomitant]
     Indication: TYPE 2 DIABETES MELLITUS
     Dosage: 40 U, DAILY (1/D)

REACTIONS (3)
  - HYPOGLYCAEMIA [None]
  - INTENTIONAL OVERDOSE [None]
  - SUICIDE ATTEMPT [None]
